FAERS Safety Report 9951911 (Version 2)
Quarter: 2014Q1

REPORT INFORMATION
  Report Type: Spontaneous
  Country: FR (occurrence: FR)
  Receive Date: 20140304
  Receipt Date: 20140304
  Transmission Date: 20141002
  Serious: Yes (Hospitalization, Other)
  Sender: FDA-Public Use
  Company Number: FR-ABBVIE-13P-056-1125614-00

PATIENT
  Age: 48 Year
  Sex: Female

DRUGS (11)
  1. NORVIR [Suspect]
     Indication: HIV INFECTION
     Dates: start: 201106
  2. PREZISTA [Suspect]
     Indication: HIV INFECTION
     Route: 048
     Dates: start: 201106
  3. ISENTRESS [Suspect]
     Indication: HIV INFECTION
     Route: 048
     Dates: start: 201202
  4. KIVEXA [Suspect]
     Indication: HIV INFECTION
     Route: 048
     Dates: start: 201106
  5. ZELITREX [Suspect]
     Indication: PRODUCT USED FOR UNKNOWN INDICATION
     Route: 048
  6. TRIATEC [Suspect]
     Indication: PRODUCT USED FOR UNKNOWN INDICATION
     Route: 048
  7. ATARAX [Concomitant]
     Indication: PRODUCT USED FOR UNKNOWN INDICATION
  8. CORTANCYL [Concomitant]
     Indication: PRODUCT USED FOR UNKNOWN INDICATION
  9. DEXERYL [Concomitant]
     Indication: DERMATOSIS
  10. DEXERYL [Concomitant]
     Indication: HIV INFECTION
  11. CORTICOSTEROIDS, DERMATOLOGICAL PREPARATIONS [Concomitant]
     Indication: PRODUCT USED FOR UNKNOWN INDICATION

REACTIONS (7)
  - Vertigo [Not Recovered/Not Resolved]
  - HIV peripheral neuropathy [Not Recovered/Not Resolved]
  - Gait disturbance [Not Recovered/Not Resolved]
  - Diplopia [Not Recovered/Not Resolved]
  - Lymphocytosis [Not Recovered/Not Resolved]
  - Convulsion [Not Recovered/Not Resolved]
  - Encephalitis [Not Recovered/Not Resolved]
